FAERS Safety Report 8979288 (Version 1)
Quarter: 2012Q4

REPORT INFORMATION
  Report Type: 
  Country: US (occurrence: US)
  Receive Date: 20121221
  Receipt Date: 20121221
  Transmission Date: 20130627
  Serious: Yes (Other)
  Sender: FDA-Public Use
  Company Number: US-PFIZER INC-2012318536

PATIENT
  Age: 64 Year
  Sex: Female
  Weight: 98.87 kg

DRUGS (2)
  1. PREPARATION H [Suspect]
     Indication: HEMORRHOIDS
     Dosage: UNK
     Dates: start: 201212
  2. ANUCORT-HC [Concomitant]
     Dosage: UNK

REACTIONS (2)
  - Haemorrhage [Not Recovered/Not Resolved]
  - Burning sensation [Not Recovered/Not Resolved]
